FAERS Safety Report 22003855 (Version 1)
Quarter: 2023Q1

REPORT INFORMATION
  Report Type: Report from Study
  Country: US (occurrence: US)
  Receive Date: 20230217
  Receipt Date: 20230217
  Transmission Date: 20230418
  Serious: Yes (Death, Hospitalization, Other)
  Sender: FDA-Public Use
  Company Number: US-TORRENT-00012350

PATIENT
  Age: 37 Year
  Sex: Male

DRUGS (5)
  1. OLANZAPINE [Suspect]
     Active Substance: OLANZAPINE
     Indication: Product used for unknown indication
     Dosage: UNKNOWN
     Route: 048
  2. HYDROCARBON [Suspect]
     Active Substance: HYDROCARBON
     Indication: Product used for unknown indication
     Dosage: UNKNOWN
     Route: 048
  3. SODIUM HYPOCHLORITE [Suspect]
     Active Substance: SODIUM HYPOCHLORITE
     Indication: Product used for unknown indication
     Dosage: UNKNOWN
     Route: 048
  4. LITHIUM [Suspect]
     Active Substance: LITHIUM
     Indication: Product used for unknown indication
     Dosage: UNKNOWN
     Route: 048
  5. SALICYLATE [Suspect]
     Active Substance: SALICYLIC ACID
     Indication: Product used for unknown indication
     Dosage: UNKNOWN
     Route: 048

REACTIONS (2)
  - Completed suicide [Fatal]
  - Toxicity to various agents [Fatal]
